FAERS Safety Report 5690756-2 (Version None)
Quarter: 2008Q2

REPORT INFORMATION
  Report Type: 
  Country: None (occurrence: None)
  Receive Date: 20080401
  Receipt Date: 20080321
  Transmission Date: 20081010
  Serious: Yes (Hospitalization)
  Sender: FDA-Public Use
  Company Number: JP-JNJFOC-20080201988

PATIENT
  Sex: Male

DRUGS (7)
  1. CRAVIT [Suspect]
     Indication: UPPER RESPIRATORY TRACT INFLAMMATION
     Route: 048
     Dates: start: 20071222, end: 20071225
  2. MEPTIN-MINI [Suspect]
     Indication: DRUG USE FOR UNKNOWN INDICATION
     Route: 065
  3. FLAVITAN [Suspect]
     Indication: DRUG USE FOR UNKNOWN INDICATION
     Route: 065
  4. RESPLEN [Concomitant]
     Indication: UPPER RESPIRATORY TRACT INFLAMMATION
     Route: 065
  5. MUCOSOLVAN [Concomitant]
     Indication: UPPER RESPIRATORY TRACT INFLAMMATION
     Route: 065
  6. ZYRTEC [Concomitant]
     Indication: UPPER RESPIRATORY TRACT INFLAMMATION
     Route: 065
  7. PL [Concomitant]
     Route: 065

REACTIONS (1)
  - INTERSTITIAL LUNG DISEASE [None]
